FAERS Safety Report 12615699 (Version 1)
Quarter: 2016Q3

REPORT INFORMATION
  Report Type: Spontaneous
  Country: US (occurrence: US)
  Receive Date: 20160802
  Receipt Date: 20160802
  Transmission Date: 20161109
  Serious: No
  Sender: FDA-Public Use
  Company Number: US-PFIZER INC-2016033914

PATIENT
  Age: 36 Year
  Sex: Female
  Weight: 105 kg

DRUGS (4)
  1. LYRICA [Suspect]
     Active Substance: PREGABALIN
     Indication: PAIN
     Dosage: 150 MG, 2X/DAY
     Route: 048
     Dates: start: 20160108
  2. LYRICA [Suspect]
     Active Substance: PREGABALIN
     Indication: NEURALGIA
  3. NICOTROL [Concomitant]
     Active Substance: NICOTINE
     Indication: SMOKING CESSATION THERAPY
     Dosage: 10MG, 1 PUFF INTO THE LUNGS EVERY 3 HOURS AS NEEDED (1 Q3HRS)
     Dates: start: 20160108
  4. NICOTROL [Concomitant]
     Active Substance: NICOTINE
     Indication: TOBACCO ABUSE

REACTIONS (1)
  - No adverse event [Unknown]
